FAERS Safety Report 14667601 (Version 1)
Quarter: 2018Q1

REPORT INFORMATION
  Report Type: Spontaneous
  Country: FR (occurrence: FR)
  Receive Date: 20180322
  Receipt Date: 20180322
  Transmission Date: 20180509
  Serious: Yes (Other)
  Sender: FDA-Public Use
  Company Number: FR-MERCK KGAA-2044303

PATIENT
  Age: 51 Year
  Sex: Female
  Weight: 61 kg

DRUGS (2)
  1. NOVOTHYROX [Suspect]
     Active Substance: LEVOTHYROXINE SODIUM
     Indication: BASEDOW^S DISEASE
     Route: 048
     Dates: start: 20170424, end: 20170515
  2. THYROZOL [Suspect]
     Active Substance: METHIMAZOLE
     Route: 048
     Dates: start: 20170405, end: 20170515

REACTIONS (6)
  - Blood bilirubin increased [Unknown]
  - Abdominal pain [Unknown]
  - Chromaturia [Unknown]
  - Fatigue [Unknown]
  - Transaminases increased [Unknown]
  - Jaundice [Unknown]

NARRATIVE: CASE EVENT DATE: 20170512
